FAERS Safety Report 4404178-5 (Version None)
Quarter: 2004Q3

REPORT INFORMATION
  Report Type: 
  Country: None (occurrence: None)
  Receive Date: 20040719
  Receipt Date: 20040714
  Transmission Date: 20050211
  Serious: Yes (Life-Threatening, Hospitalization)
  Sender: FDA-Public Use
  Company Number: 200410428BNE

PATIENT
  Age: 84 Year
  Sex: Male

DRUGS (10)
  1. ASPIRIN [Suspect]
     Indication: PROPHYLAXIS
     Dosage: 75 MG, TOTAL DAILY, ORAL
     Route: 048
     Dates: end: 20040501
  2. ARCOXIA [Suspect]
     Indication: ARTHRITIS
     Dosage: 60 MG, TOTAL DAILY, ORAL
     Route: 048
     Dates: start: 20040201, end: 20040501
  3. TAMSULOSIN [Concomitant]
  4. GLICLAZIDE [Concomitant]
  5. FELODIPINE [Concomitant]
  6. BENDROFLUAZIDE [Concomitant]
  7. ATENOLOL [Concomitant]
  8. ATORVASTATIN CALCIUM [Concomitant]
  9. LISINOPRIL [Concomitant]
  10. BETAGAN [Concomitant]

REACTIONS (10)
  - ABDOMINAL PAIN [None]
  - BLOOD PRESSURE DECREASED [None]
  - CIRCULATORY COLLAPSE [None]
  - CONSTIPATION [None]
  - DIZZINESS [None]
  - DUODENAL ULCER [None]
  - GASTROINTESTINAL HAEMORRHAGE [None]
  - HAEMATEMESIS [None]
  - NAUSEA [None]
  - WEIGHT DECREASED [None]
